FAERS Safety Report 5875927-4 (Version None)
Quarter: 2008Q3

REPORT INFORMATION
  Report Type: 
  Country: None (occurrence: None)
  Receive Date: 20080910
  Receipt Date: 20080813
  Transmission Date: 20090109
  Serious: No
  Sender: FDA-Public Use
  Company Number: US-JNJFOC-20080803302

PATIENT
  Sex: Female

DRUGS (1)
  1. INVEGA [Suspect]
     Indication: SCHIZOPHRENIA
     Route: 048

REACTIONS (3)
  - DRY EYE [None]
  - DRY MOUTH [None]
  - THIRST [None]
